FAERS Safety Report 23340144 (Version 5)
Quarter: 2024Q3

REPORT INFORMATION
  Report Type: Spontaneous
  Country: US (occurrence: US)
  Receive Date: 20231227
  Receipt Date: 20240710
  Transmission Date: 20241016
  Serious: Yes (Other)
  Sender: SANOFI AVENTIS
  Company Number: US-SA-SAC20231218001344

PATIENT
  Age: 53 Year
  Sex: Male

DRUGS (4)
  1. CAPRELSA [Suspect]
     Active Substance: VANDETANIB
     Indication: Thyroid cancer
     Dosage: 300 MG, QD
     Route: 048
     Dates: start: 20231011
  2. CAPRELSA [Suspect]
     Active Substance: VANDETANIB
     Dosage: 100 MG, BID
     Route: 048
  3. CAPRELSA [Suspect]
     Active Substance: VANDETANIB
     Dosage: 200 MG, BID
     Route: 048
  4. OXYCONTIN [Concomitant]
     Active Substance: OXYCODONE HYDROCHLORIDE
     Dosage: UNK

REACTIONS (8)
  - Carcinoembryonic antigen increased [Unknown]
  - Dizziness [Unknown]
  - Blood calcitonin increased [Unknown]
  - Hepatic enzyme increased [Recovering/Resolving]
  - Disease progression [Unknown]
  - Diarrhoea [Unknown]
  - Abdominal pain upper [Unknown]
  - Fatigue [Unknown]

NARRATIVE: CASE EVENT DATE: 20230101
